FAERS Safety Report 6097815-3 (Version None)
Quarter: 2009Q1

REPORT INFORMATION
  Report Type: 
  Country: None (occurrence: None)
  Receive Date: 20090227
  Receipt Date: 20090217
  Transmission Date: 20090719
  Serious: Yes (Disabling, Other)
  Sender: FDA-Public Use
  Company Number: AU-PFIZER INC-2009163543

PATIENT

DRUGS (5)
  1. ZOLOFT [Suspect]
     Indication: DEPRESSION
     Dosage: 50 MG, 1X/DAY
     Route: 048
     Dates: start: 20080826, end: 20081125
  2. CRESTOR [Concomitant]
     Dosage: 10 MG, UNK
     Route: 048
     Dates: start: 20060101
  3. PERINDOPRIL ERBUMINE/INDAPAMIDE HEMIHYDRATE [Concomitant]
     Dosage: UNK
     Route: 048
     Dates: start: 20060101
  4. ASPIRIN [Concomitant]
     Dosage: UNK
     Route: 048
     Dates: start: 20060101
  5. MULTIPLE VITAMINS [Concomitant]
     Dosage: UNK
     Route: 048
     Dates: start: 20050101

REACTIONS (4)
  - BLOOD CHOLESTEROL INCREASED [None]
  - BLOOD GLUCOSE INCREASED [None]
  - RHEUMATOID ARTHRITIS [None]
  - URINARY RETENTION [None]
